FAERS Safety Report 13794935 (Version 1)
Quarter: 2017Q3

REPORT INFORMATION
  Report Type: Spontaneous
  Country: IR (occurrence: IR)
  Receive Date: 20170726
  Receipt Date: 20170726
  Transmission Date: 20171127
  Serious: Yes (Hospitalization, Congenital Anomaly, Other)
  Sender: FDA-Public Use
  Company Number: IR-MYLANLABS-2017M1044131

PATIENT

DRUGS (1)
  1. ISOTRETINOIN [Suspect]
     Active Substance: ISOTRETINOIN
     Indication: PRODUCT USED FOR UNKNOWN INDICATION
     Route: 064

REACTIONS (5)
  - Anotia [Unknown]
  - Cleft palate [Unknown]
  - Anophthalmos [Unknown]
  - Foetal exposure during pregnancy [Recovered/Resolved]
  - Anal atresia [Unknown]
